FAERS Safety Report 5610053-0 (Version None)
Quarter: 2008Q1

REPORT INFORMATION
  Report Type: 
  Country: None (occurrence: None)
  Receive Date: 20080131
  Receipt Date: 20071207
  Transmission Date: 20080703
  Serious: No
  Sender: FDA-Public Use
  Company Number: US-BAYER-200715862NA

PATIENT
  Sex: Male

DRUGS (1)
  1. AVELOX [Suspect]
     Indication: TOOTH ABSCESS
     Route: 048

REACTIONS (2)
  - HYPERSENSITIVITY [None]
  - SWELLING FACE [None]
